FAERS Safety Report 4532732-9 (Version None)
Quarter: 2004Q4

REPORT INFORMATION
  Report Type: 
  Country: None (occurrence: None)
  Receive Date: 20041220
  Receipt Date: 20041220
  Transmission Date: 20050328
  Serious: Yes (Other)
  Sender: FDA-Public Use
  Company Number: None

PATIENT
  Age: 40 Year
  Sex: Male
  Weight: 95.2554 kg

DRUGS (7)
  1. OXALIPLATIN 200 MG IV [Suspect]
     Indication: COLON CANCER METASTATIC
     Dosage: 200 MG Q 2 WKS IV
     Route: 042
  2. ATIVAN [Concomitant]
  3. DECADRON [Concomitant]
  4. AVASTIN [Concomitant]
  5. FUDR [Concomitant]
  6. HEPARIN [Concomitant]
  7. ELOXATIN [Concomitant]

REACTIONS (5)
  - CHEST DISCOMFORT [None]
  - INFUSION RELATED REACTION [None]
  - OXYGEN SATURATION DECREASED [None]
  - PRURITUS [None]
  - URTICARIA [None]
